FAERS Safety Report 5543651-3 (Version None)
Quarter: 2007Q4

REPORT INFORMATION
  Report Type: 
  Country: None (occurrence: None)
  Receive Date: 20071210
  Receipt Date: 20061110
  Transmission Date: 20080405
  Serious: No
  Sender: FDA-Public Use
  Company Number: US-AMGEN-KDL199947

PATIENT
  Sex: Male

DRUGS (1)
  1. ENBREL [Suspect]
     Indication: GENITAL CANDIDIASIS
     Dates: start: 20041230

REACTIONS (4)
  - BASAL CELL CARCINOMA [None]
  - FOOD POISONING [None]
  - SINUSITIS [None]
  - TINEA PEDIS [None]
